FAERS Safety Report 16194985 (Version 3)
Quarter: 2019Q2

REPORT INFORMATION
  Report Type: Report from Study
  Country: None (occurrence: ES)
  Receive Date: 20190415
  Receipt Date: 20190418
  Transmission Date: 20190711
  Serious: Yes (Other)
  Sender: FDA-Public Use
  Company Number: ES-ABBVIE-19S-144-2742184-00

PATIENT
  Age: 54 Year
  Sex: Female
  Weight: 75 kg

DRUGS (1)
  1. DUODOPA [Suspect]
     Active Substance: CARBIDOPA\LEVODOPA
     Indication: PARKINSON^S DISEASE
     Dosage: MD:7ML CD: 2.7ML/H ED: 1.5ML 1 CARTRIDGE DAILY
     Route: 050
     Dates: start: 20180301

REACTIONS (2)
  - Ankle operation [Recovering/Resolving]
  - Medical device discomfort [Unknown]

NARRATIVE: CASE EVENT DATE: 20190402
